FAERS Safety Report 4524347-3 (Version None)
Quarter: 2004Q4

REPORT INFORMATION
  Report Type: 
  Country: None (occurrence: None)
  Receive Date: 20041119
  Receipt Date: 20040901
  Transmission Date: 20050328
  Serious: Yes (Other)
  Sender: FDA-Public Use
  Company Number: PHEH2004US09025

PATIENT
  Age: 45 Year
  Sex: Female
  Weight: 59 kg

DRUGS (11)
  1. ZELNORM [Suspect]
     Indication: IRRITABLE BOWEL SYNDROME
     Dosage: SEE IMAGE
     Route: 048
     Dates: start: 20040601
  2. ZELNORM [Suspect]
     Indication: IRRITABLE BOWEL SYNDROME
     Dosage: SEE IMAGE
     Route: 048
     Dates: start: 20040810
  3. LEXAPRO [Concomitant]
  4. VIOXX [Concomitant]
  5. FIORICET [Concomitant]
  6. ASPIRIN [Concomitant]
  7. CLARITIN [Concomitant]
  8. FLEXERIL [Concomitant]
  9. MULTIVITAMINS (PANTHENOL, RETINOL) [Concomitant]
  10. TUMS [Concomitant]
  11. MYCOLOG (NYSTATIN, TRIAMCINOLONE ACETONIDE) [Concomitant]

REACTIONS (3)
  - CONDITION AGGRAVATED [None]
  - ELECTROCARDIOGRAM REPOLARISATION ABNORMALITY [None]
  - VENTRICULAR EXTRASYSTOLES [None]
